FAERS Safety Report 9068413 (Version 1)
Quarter: 2013Q1

REPORT INFORMATION
  Report Type: Spontaneous
  Country: US (occurrence: None)
  Receive Date: 20130212
  Receipt Date: 20130212
  Transmission Date: 20140127
  Serious: No
  Sender: FDA-Public Use
  Company Number: None

PATIENT
  Age: 63 Year
  Sex: Female
  Weight: 52.16 kg

DRUGS (1)
  1. PROLIA [Suspect]

REACTIONS (8)
  - Convulsion [None]
  - Dyskinesia [None]
  - Hyperhidrosis [None]
  - Back pain [None]
  - Injection site pain [None]
  - Insomnia [None]
  - Neck pain [None]
  - Activities of daily living impaired [None]
